FAERS Safety Report 6680883-5 (Version None)
Quarter: 2010Q2

REPORT INFORMATION
  Report Type: 
  Country: None (occurrence: None)
  Receive Date: 20100414
  Receipt Date: 20100405
  Transmission Date: 20101027
  Serious: Yes (Hospitalization)
  Sender: FDA-Public Use
  Company Number: US-BRISTOL-MYERS SQUIBB COMPANY-14900690

PATIENT
  Age: 66 Year
  Sex: Female

DRUGS (26)
  1. CT-322 [Suspect]
     Indication: NON-SMALL CELL LUNG CANCER
     Dosage: 1 DOSAGE FORM=2 RESTARTED ON 06JAN2010
     Route: 042
     Dates: start: 20090916
  2. TAXOL [Suspect]
     Indication: NON-SMALL CELL LUNG CANCER
     Dosage: RESTARTED ON 06JAN2010
     Route: 042
     Dates: start: 20090916
  3. CARBOPLATIN [Suspect]
     Indication: NON-SMALL CELL LUNG CANCER
     Dosage: 1 DOSAGE FORM=AUC 5. RESTARTED ON 06JAN2010
     Route: 042
     Dates: start: 20090916
  4. AVASTIN [Suspect]
     Indication: NON-SMALL CELL LUNG CANCER
     Dosage: RESTARTED ON 06JAN2010
     Route: 042
     Dates: start: 20090916
  5. PLACEBO [Suspect]
     Indication: NON-SMALL CELL LUNG CANCER
     Dosage: RESTARTED ON 06JAN2010
     Dates: start: 20090916
  6. PLAVIX [Concomitant]
     Indication: PROPHYLAXIS
     Route: 048
     Dates: start: 20020101
  7. LISINOPRIL [Concomitant]
     Indication: HYPERTENSION
     Route: 048
     Dates: start: 19990101
  8. METOPROLOL TARTRATE [Concomitant]
     Indication: HYPERTENSION
     Route: 048
     Dates: start: 19990101
  9. GABAPENTIN [Concomitant]
     Indication: NEUROPATHY PERIPHERAL
     Route: 048
     Dates: start: 20010101
  10. PROZAC [Concomitant]
     Indication: DEPRESSION
     Route: 048
     Dates: start: 19990101
  11. LORAZEPAM [Concomitant]
     Indication: ANXIETY
     Route: 048
     Dates: start: 19990101
  12. LASIX [Concomitant]
     Indication: OEDEMA
     Route: 048
     Dates: start: 20020101
  13. HUMULIN R [Concomitant]
     Indication: TYPE 1 DIABETES MELLITUS
     Dosage: 1 DOSAGE FORM=70/30 IU.
     Route: 058
     Dates: start: 20060101
  14. ALOXI [Concomitant]
     Indication: PREMEDICATION
     Route: 042
     Dates: start: 20090916
  15. BENADRYL [Concomitant]
     Indication: PREMEDICATION
     Route: 042
     Dates: start: 20090916
  16. DECADRON [Concomitant]
     Indication: PREMEDICATION
     Route: 042
     Dates: start: 20090916
  17. ZANTAC [Concomitant]
     Indication: PREMEDICATION
     Route: 042
     Dates: start: 20090916
  18. NEULASTA [Concomitant]
     Indication: NEUTROPENIA
     Route: 058
     Dates: start: 20090916
  19. IMODIUM [Concomitant]
     Indication: DIARRHOEA
     Route: 048
     Dates: start: 20090917
  20. OXYCODONE [Concomitant]
     Indication: PAIN
     Route: 048
     Dates: start: 20090923
  21. COMPAZINE [Concomitant]
     Indication: NAUSEA
     Route: 048
     Dates: start: 20091007
  22. GLUCOPHAGE [Concomitant]
     Indication: TYPE 1 DIABETES MELLITUS
     Route: 048
     Dates: start: 20091015
  23. NORVASC [Concomitant]
     Indication: HYPERTENSION
     Route: 048
     Dates: start: 20091017
  24. PRILOSEC [Concomitant]
     Indication: GASTROOESOPHAGEAL REFLUX DISEASE
     Route: 048
     Dates: start: 20091024
  25. LIPITOR [Concomitant]
     Indication: HYPERCHOLESTEROLAEMIA
     Route: 048
     Dates: start: 20091024
  26. KLOR-CON [Concomitant]
     Indication: MINERAL SUPPLEMENTATION
     Route: 048
     Dates: start: 20091022

REACTIONS (1)
  - ACTIVATED PARTIAL THROMBOPLASTIN TIME PROLONGED [None]
